FAERS Safety Report 20120954 (Version 16)
Quarter: 2023Q1

REPORT INFORMATION
  Report Type: Spontaneous
  Country: CA (occurrence: CA)
  Receive Date: 20211127
  Receipt Date: 20230316
  Transmission Date: 20230417
  Serious: Yes (Hospitalization, Other)
  Sender: FDA-Public Use
  Company Number: CA-CELLTRION INC.-2021CA016089

PATIENT

DRUGS (8)
  1. INFLECTRA [Suspect]
     Active Substance: INFLIXIMAB-DYYB
     Indication: Crohn^s disease
     Dosage: 1000 MG INDUCTION AT 0 , 2, 6 THEN EVERY 6 WEEKS
     Route: 042
  2. INFLECTRA [Suspect]
     Active Substance: INFLIXIMAB-DYYB
     Dosage: 1000 MG INDUCTION AT 0 , 2, 6 THEN EVERY 6 WEEKS
     Route: 042
     Dates: start: 20211007
  3. INFLECTRA [Suspect]
     Active Substance: INFLIXIMAB-DYYB
     Dosage: 1000 MG INDUCTION AT 0 , 2, 6 THEN EVERY 6 WEEKS
     Route: 042
     Dates: start: 20220324
  4. INFLECTRA [Suspect]
     Active Substance: INFLIXIMAB-DYYB
     Dosage: 1000 MG, INDUCTION AT Q 0 , 2, 6 WEEK THEN EVERY 6 WEEKS
     Route: 042
     Dates: start: 20220404
  5. INFLECTRA [Suspect]
     Active Substance: INFLIXIMAB-DYYB
     Dosage: 1000 MG, INDUCTION AT 0 , 2, 6 THEN EVERY 6 WEEKS
     Route: 042
     Dates: start: 20220804
  6. INFLECTRA [Suspect]
     Active Substance: INFLIXIMAB-DYYB
     Dosage: UNK
  7. INFLECTRA [Suspect]
     Active Substance: INFLIXIMAB-DYYB
     Dosage: 1000 MG, INDUCTION AT 0 , 2, 6 THEN EVERY 6 WEEKS
     Route: 042
     Dates: start: 20221208
  8. INFLECTRA [Suspect]
     Active Substance: INFLIXIMAB-DYYB
     Dosage: UNK

REACTIONS (31)
  - Atrioventricular block [Not Recovered/Not Resolved]
  - Diarrhoea [Unknown]
  - Pyrexia [Not Recovered/Not Resolved]
  - Crohn^s disease [Unknown]
  - Therapeutic response shortened [Unknown]
  - Therapeutic product effect delayed [Not Recovered/Not Resolved]
  - Sinusitis [Recovered/Resolved]
  - Feeling abnormal [Unknown]
  - Arthritis [Unknown]
  - Ligament rupture [Not Recovered/Not Resolved]
  - Joint swelling [Not Recovered/Not Resolved]
  - Inflammation [Not Recovered/Not Resolved]
  - Frequent bowel movements [Unknown]
  - Defaecation urgency [Unknown]
  - Asthenia [Unknown]
  - Malaise [Unknown]
  - Bedridden [Unknown]
  - Skin exfoliation [Unknown]
  - Heart rate increased [Unknown]
  - Nausea [Recovering/Resolving]
  - Condition aggravated [Unknown]
  - Arthralgia [Not Recovered/Not Resolved]
  - Myalgia [Not Recovered/Not Resolved]
  - Headache [Not Recovered/Not Resolved]
  - Dry skin [Unknown]
  - COVID-19 [Recovered/Resolved]
  - Influenza like illness [Unknown]
  - Vitiligo [Not Recovered/Not Resolved]
  - Muscle spasms [Unknown]
  - Discomfort [Unknown]
  - Off label use [Unknown]

NARRATIVE: CASE EVENT DATE: 20211101
